FAERS Safety Report 23365559 (Version 1)
Quarter: 2024Q1

REPORT INFORMATION
  Report Type: Spontaneous
  Country: TW (occurrence: TW)
  Receive Date: 20240104
  Receipt Date: 20240104
  Transmission Date: 20240409
  Serious: Yes (Hospitalization)
  Sender: FDA-Public Use
  Company Number: TW-ORPHANEU-2023009212

PATIENT

DRUGS (1)
  1. HEME [Suspect]
     Active Substance: HEME
     Indication: Porphyria
     Dosage: 250 MILLIGRAM, Q2W (ONCE EVERY TWO WEEKS)
     Route: 042
     Dates: start: 2015

REACTIONS (2)
  - Pyrexia [Recovered/Resolved]
  - Off label use [Recovered/Resolved]

NARRATIVE: CASE EVENT DATE: 20231216
